FAERS Safety Report 20671470 (Version 32)
Quarter: 2025Q2

REPORT INFORMATION
  Report Type: Report from Study
  Country: US (occurrence: US)
  Receive Date: 20220404
  Receipt Date: 20250530
  Transmission Date: 20250716
  Serious: Yes (Other)
  Sender: TAKEDA
  Company Number: US-TAKEDA-2022TUS021306

PATIENT
  Age: 43 Year
  Sex: Female
  Weight: 67 kg

DRUGS (43)
  1. HUMAN IMMUNOGLOBULIN G [Suspect]
     Active Substance: HUMAN IMMUNOGLOBULIN G
     Indication: Immunodeficiency common variable
     Dosage: 10 GRAM, 1/WEEK
     Dates: start: 20200730, end: 20210609
  2. HUMAN IMMUNOGLOBULIN G [Suspect]
     Active Substance: HUMAN IMMUNOGLOBULIN G
     Dosage: 10 GRAM, 1/WEEK
     Dates: start: 20200812
  3. HUMAN IMMUNOGLOBULIN G [Suspect]
     Active Substance: HUMAN IMMUNOGLOBULIN G
     Dosage: 20 GRAM, 1/WEEK
     Dates: start: 20210505, end: 20210708
  4. HUMAN IMMUNOGLOBULIN G [Suspect]
     Active Substance: HUMAN IMMUNOGLOBULIN G
     Dosage: 20 GRAM, Q2WEEKS
     Dates: start: 20210518
  5. GAMMAGARD LIQUID [Suspect]
     Active Substance: HUMAN IMMUNOGLOBULIN G
     Indication: Immunodeficiency common variable
     Dosage: 10 GRAM, 1/WEEK
     Dates: start: 20190621
  6. GAMMAGARD LIQUID [Suspect]
     Active Substance: HUMAN IMMUNOGLOBULIN G
     Indication: Primary immunodeficiency syndrome
     Dosage: 10 GRAM, 1/WEEK
  7. ESTRADIOL [Suspect]
     Active Substance: ESTRADIOL
     Indication: Product used for unknown indication
  8. ACETAMINOPHEN [Concomitant]
     Active Substance: ACETAMINOPHEN
  9. CEPHALEXIN [Concomitant]
     Active Substance: CEPHALEXIN
  10. ZYRTEC [Concomitant]
     Active Substance: CETIRIZINE HYDROCHLORIDE
  11. TIZANIDINE HYDROCHLORIDE [Concomitant]
     Active Substance: TIZANIDINE HYDROCHLORIDE
  12. SINGULAIR [Concomitant]
     Active Substance: MONTELUKAST SODIUM
  13. AZELASTINE HYDROCHLORIDE [Concomitant]
     Active Substance: AZELASTINE HYDROCHLORIDE
  14. TERCONAZOLE [Concomitant]
     Active Substance: TERCONAZOLE
  15. CYANOCOBALAMIN [Concomitant]
     Active Substance: CYANOCOBALAMIN
  16. NORCO [Concomitant]
     Active Substance: ACETAMINOPHEN\HYDROCODONE BITARTRATE
  17. VIVELLE [Concomitant]
     Active Substance: ESTRADIOL
  18. PEPCID [Concomitant]
     Active Substance: FAMOTIDINE
  19. GYNAZOLE-1 [Concomitant]
     Active Substance: BUTOCONAZOLE NITRATE
  20. BYSTOLIC [Concomitant]
     Active Substance: NEBIVOLOL HYDROCHLORIDE
  21. NEXIUM [Concomitant]
     Active Substance: ESOMEPRAZOLE MAGNESIUM
  22. CALTRATE WITH VITAMIN D [Concomitant]
     Active Substance: CALCIUM CARBONATE\CHOLECALCIFEROL
  23. LIDOCAINE [Concomitant]
     Active Substance: LIDOCAINE
  24. TYLENOL COLD HEAD CONGESTION SEVERE [Concomitant]
     Active Substance: ACETAMINOPHEN\DEXTROMETHORPHAN HYDROBROMIDE\GUAIFENESIN\PHENYLEPHRINE HYDROCHLORIDE
  25. PROMETHAZINE HYDROCHLORIDE [Concomitant]
     Active Substance: PROMETHAZINE HYDROCHLORIDE
  26. DIPHENHYDRAMINE [Concomitant]
     Active Substance: DIPHENHYDRAMINE
  27. KLONOPIN [Concomitant]
     Active Substance: CLONAZEPAM
  28. AZITHROMYCIN [Concomitant]
     Active Substance: AZITHROMYCIN
  29. DIFLUCAN [Concomitant]
     Active Substance: FLUCONAZOLE
  30. SERTRALINE HYDROCHLORIDE [Concomitant]
     Active Substance: SERTRALINE HYDROCHLORIDE
  31. CARAFATE [Concomitant]
     Active Substance: SUCRALFATE
  32. EPINEPHRINE [Concomitant]
     Active Substance: EPINEPHRINE
  33. Lmx [Concomitant]
  34. ENBREL [Concomitant]
     Active Substance: ETANERCEPT
  35. SOLU-MEDROL [Concomitant]
     Active Substance: METHYLPREDNISOLONE SODIUM SUCCINATE
  36. BENADRYL [Concomitant]
     Active Substance: DIPHENHYDRAMINE HYDROCHLORIDE
  37. TYLENOL [Concomitant]
     Active Substance: ACETAMINOPHEN
  38. MINIVELLE [Concomitant]
     Active Substance: ESTRADIOL
  39. DEXAMETHASONE [Concomitant]
     Active Substance: DEXAMETHASONE
  40. HEPARIN [Concomitant]
     Active Substance: HEPARIN SODIUM
  41. SODIUM CHLORIDE [Concomitant]
     Active Substance: SODIUM CHLORIDE
  42. LACTATED RINGERS SOLUTION [Concomitant]
     Active Substance: CALCIUM CHLORIDE\POTASSIUM CHLORIDE\SODIUM CHLORIDE\SODIUM LACTATE
  43. DIPHENHYDRAMINE HYDROCHLORIDE [Concomitant]
     Active Substance: DIPHENHYDRAMINE HYDROCHLORIDE

REACTIONS (39)
  - Rheumatoid arthritis [Unknown]
  - Kidney infection [Unknown]
  - Impaired gastric emptying [Not Recovered/Not Resolved]
  - Myocardial injury [Unknown]
  - Shock [Recovered/Resolved]
  - Seizure [Unknown]
  - Myocardial infarction [Unknown]
  - Post-acute COVID-19 syndrome [Not Recovered/Not Resolved]
  - Upper respiratory tract infection [Unknown]
  - Sinusitis [Recovered/Resolved]
  - Ear infection [Recovered/Resolved]
  - Urinary tract infection [Not Recovered/Not Resolved]
  - Infusion related reaction [Unknown]
  - Stress [Unknown]
  - Immunoglobulins decreased [Unknown]
  - Skin disorder [Unknown]
  - Fall [Unknown]
  - Arthropathy [Unknown]
  - Sensitive skin [Unknown]
  - Blister [Unknown]
  - Cystitis [Unknown]
  - Needle issue [Unknown]
  - Illness [Unknown]
  - Bone contusion [Unknown]
  - Viral infection [Not Recovered/Not Resolved]
  - Infection [Unknown]
  - Incorrect drug administration rate [Unknown]
  - Inappropriate schedule of product administration [Unknown]
  - Feeling abnormal [Unknown]
  - Contusion [Unknown]
  - Musculoskeletal chest pain [Unknown]
  - Asthenia [Unknown]
  - Rash [Unknown]
  - Blood pressure increased [Not Recovered/Not Resolved]
  - Migraine [Unknown]
  - Urticaria [Unknown]
  - Arthralgia [Unknown]
  - Pruritus [Unknown]
  - Fatigue [Unknown]

NARRATIVE: CASE EVENT DATE: 20210218
